FAERS Safety Report 11593672 (Version 1)
Quarter: 2015Q4

REPORT INFORMATION
  Report Type: Spontaneous
  Country: US (occurrence: None)
  Receive Date: 20151002
  Receipt Date: 20151002
  Transmission Date: 20160304
  Serious: Yes (Hospitalization)
  Sender: FDA-Public Use
  Company Number: None

PATIENT
  Age: 58 Year
  Sex: Female
  Weight: 57.3 kg

DRUGS (1)
  1. TAXOTERE [Suspect]
     Active Substance: DOCETAXEL

REACTIONS (4)
  - Respiratory arrest [None]
  - Pneumonia aspiration [None]
  - Pneumonia [None]
  - Pleural effusion [None]

NARRATIVE: CASE EVENT DATE: 20150729
